FAERS Safety Report 25479887 (Version 1)
Quarter: 2025Q2

REPORT INFORMATION
  Report Type: Spontaneous
  Country: GB (occurrence: GB)
  Receive Date: 20250625
  Receipt Date: 20250625
  Transmission Date: 20250716
  Serious: Yes (Other)
  Sender: ELI LILLY AND COMPANY
  Company Number: None

PATIENT
  Age: 38 Year
  Sex: Male

DRUGS (3)
  1. MOUNJARO [Suspect]
     Active Substance: TIRZEPATIDE
     Indication: Weight control
     Route: 065
     Dates: start: 20250101, end: 20250201
  2. SYMBICORT [Concomitant]
     Active Substance: BUDESONIDE\FORMOTEROL FUMARATE DIHYDRATE
     Indication: Asthma
     Dates: start: 20180101
  3. CITALOPRAM [Concomitant]
     Active Substance: CITALOPRAM
     Indication: Anxiety disorder
     Dates: start: 20200101, end: 20250501

REACTIONS (6)
  - Epididymal cyst [Not Recovered/Not Resolved]
  - Dehydration [Recovered/Resolved]
  - Renal pain [Recovered/Resolved]
  - Micturition urgency [Recovering/Resolving]
  - Epididymitis [Recovered/Resolved with Sequelae]
  - Thirst [Unknown]

NARRATIVE: CASE EVENT DATE: 20250101
